FAERS Safety Report 24721778 (Version 1)
Quarter: 2024Q4

REPORT INFORMATION
  Report Type: Spontaneous
  Country: US (occurrence: US)
  Receive Date: 20241211
  Receipt Date: 20241211
  Transmission Date: 20250115
  Serious: No
  Sender: ALK-ABELLO
  Company Number: US-ALK-ABELLO A/S-2024AA004407

PATIENT

DRUGS (11)
  1. JUGLANS REGIA POLLEN [Suspect]
     Active Substance: JUGLANS REGIA POLLEN
     Indication: Skin test
     Dosage: UNK
     Dates: start: 20240110
  2. JUGLANS REGIA POLLEN [Suspect]
     Active Substance: JUGLANS REGIA POLLEN
     Dosage: UNK
     Dates: start: 20240131
  3. JUGLANS REGIA POLLEN [Suspect]
     Active Substance: JUGLANS REGIA POLLEN
     Dosage: UNK
     Dates: start: 20240820
  4. ALLERGENIC EXTRACT- PEANUT ARACHIS HYPOGAEA [Suspect]
     Active Substance: ALLERGENIC EXTRACT- PEANUT ARACHIS HYPOGAEA
     Indication: Diagnostic procedure
     Dosage: UNK
     Dates: start: 20240110
  5. ALLERGENIC EXTRACT- PEANUT ARACHIS HYPOGAEA [Suspect]
     Active Substance: ALLERGENIC EXTRACT- PEANUT ARACHIS HYPOGAEA
     Dosage: UNK
     Dates: start: 20240131
  6. ALLERGENIC EXTRACT- PEANUT ARACHIS HYPOGAEA [Suspect]
     Active Substance: ALLERGENIC EXTRACT- PEANUT ARACHIS HYPOGAEA
     Dosage: UNK
     Dates: start: 20240820
  7. GERI-DRYL [Concomitant]
     Active Substance: DIPHENHYDRAMINE HYDROCHLORIDE
     Dosage: 7.5 MILLILITER (12.5MG/5ML)
     Route: 048
     Dates: start: 20240327
  8. PREDNISOLONE SODIUM PHOSPHATE [Concomitant]
     Active Substance: PREDNISOLONE SODIUM PHOSPHATE
     Dosage: 2.5 MILLILITER (3MG/ML)(DAILY FOR 5 DAYS)
     Route: 048
     Dates: start: 20240327
  9. PEPCID COMPLETE [Concomitant]
     Active Substance: CALCIUM CARBONATE\FAMOTIDINE\MAGNESIUM HYDROXIDE
     Dosage: 1 TAB (10MG-800MG-165MG) (1 TABLET NOW FOR 1 DAY)
     Dates: start: 20240319
  10. EPINEPHRINE [Concomitant]
     Active Substance: EPINEPHRINE
     Dosage: 0.15 MILLIGRAM
     Dates: start: 20240319
  11. AUVI-Q [Concomitant]
     Active Substance: EPINEPHRINE
     Indication: Anaphylactic reaction
     Dosage: 0.15 ML AUTO-INJECTOR
     Dates: start: 20231001

REACTIONS (1)
  - False negative investigation result [Unknown]
